FAERS Safety Report 20439459 (Version 1)
Quarter: 2022Q1

REPORT INFORMATION
  Report Type: Spontaneous
  Country: US (occurrence: None)
  Receive Date: 20220205
  Receipt Date: 20220205
  Transmission Date: 20220424
  Serious: No
  Sender: FDA-Public Use
  Company Number: None

PATIENT
  Age: 92 Year
  Sex: Male

DRUGS (1)
  1. TABRECTA [Suspect]
     Active Substance: CAPMATINIB
     Dosage: 150MG BID ORAL
     Route: 048
     Dates: start: 202202

REACTIONS (1)
  - Off label use [None]

NARRATIVE: CASE EVENT DATE: 20220205
